FAERS Safety Report 12897872 (Version 2)
Quarter: 2016Q4

REPORT INFORMATION
  Report Type: Spontaneous
  Country: FR (occurrence: FR)
  Receive Date: 20161031
  Receipt Date: 20161102
  Transmission Date: 20170207
  Serious: Yes (Death, Other)
  Sender: FDA-Public Use
  Company Number: FR-BIOMARINAP-FR-2016-111607

PATIENT
  Age: 37 Year
  Sex: Male

DRUGS (1)
  1. ALDURAZYME [Suspect]
     Active Substance: LARONIDASE
     Indication: MUCOPOLYSACCHARIDOSIS I
     Dosage: UNK, QW
     Route: 041

REACTIONS (5)
  - Central venous catheterisation [Unknown]
  - Back pain [Unknown]
  - Cardiac arrest [Unknown]
  - Sudden death [Fatal]
  - Pain in extremity [Unknown]

NARRATIVE: CASE EVENT DATE: 201609
